APPROVED DRUG PRODUCT: HYDROCORTISONE AND ACETIC ACID
Active Ingredient: ACETIC ACID, GLACIAL; HYDROCORTISONE
Strength: 2%;1%
Dosage Form/Route: SOLUTION/DROPS;OTIC
Application: A040168 | Product #001
Applicant: WOCKHARDT EU OPERATIONS (SWISS) AG
Approved: Aug 30, 1996 | RLD: No | RS: No | Type: DISCN